FAERS Safety Report 4613927-2 (Version None)
Quarter: 2005Q1

REPORT INFORMATION
  Report Type: 
  Country: None (occurrence: None)
  Receive Date: 20050316
  Receipt Date: 20050302
  Transmission Date: 20050727
  Serious: Yes (Hospitalization, Other)
  Sender: FDA-Public Use
  Company Number: HQWYE765402MAR05

PATIENT
  Age: 66 Year
  Sex: Male

DRUGS (8)
  1. CORDARONE [Suspect]
     Dosage: 200 MG 1X PER 1 DAY, ORAL
     Route: 048
     Dates: start: 20040405, end: 20040507
  2. KARDEGIC        (ACETYLSALICYLATE LYSINE, ) [Suspect]
     Dosage: 75 MG 1X PER 1 DAY, ORAL
     Route: 048
     Dates: start: 20040405, end: 20040507
  3. ATARAX [Concomitant]
  4. STOLNOX [Concomitant]
  5. DEROXAT [Concomitant]
  6. COTAREG [Concomitant]
  7. ISKEDYL [Concomitant]
  8. LAMALINE [Concomitant]

REACTIONS (5)
  - ACUTE GENERALISED EXANTHEMATOUS PUSTULOSIS [None]
  - ATRIAL FIBRILLATION [None]
  - HYPOTENSION [None]
  - PSORIASIS [None]
  - STRESS [None]
